FAERS Safety Report 21902913 (Version 1)
Quarter: 2023Q1

REPORT INFORMATION
  Report Type: Spontaneous
  Country: US (occurrence: US)
  Receive Date: 20230124
  Receipt Date: 20230124
  Transmission Date: 20230418
  Serious: Yes (Other)
  Sender: FDA-Public Use
  Company Number: US-SUN PHARMACEUTICAL INDUSTRIES LTD-2023R1-372641

PATIENT
  Sex: Female
  Weight: 68 kg

DRUGS (2)
  1. METOPROLOL [Suspect]
     Active Substance: METOPROLOL
     Indication: Blood pressure management
     Dosage: 100 MILLIGRAM, DAILY
     Route: 065
     Dates: start: 20220302
  2. SUMATRIPTAN [Concomitant]
     Active Substance: SUMATRIPTAN
     Indication: Blood pressure management
     Dosage: 100 MILLIGRAM
     Route: 065

REACTIONS (2)
  - Hallucination [Not Recovered/Not Resolved]
  - Therapeutic response unexpected [Unknown]
